FAERS Safety Report 6449505-2 (Version None)
Quarter: 2009Q4

REPORT INFORMATION
  Report Type: 
  Country: None (occurrence: None)
  Receive Date: 20091120
  Receipt Date: 20091108
  Transmission Date: 20100525
  Serious: Yes (Other)
  Sender: FDA-Public Use
  Company Number: PH-ELI_LILLY_AND_COMPANY-PH200911001845

PATIENT
  Sex: Male

DRUGS (2)
  1. STRATTERA [Suspect]
     Dosage: 10 MG, DAILY (1/D)
     Route: 065
     Dates: start: 20090901, end: 20091107
  2. RISPERIDONE [Concomitant]
     Dosage: UNK, UNKNOWN
     Route: 065
     Dates: start: 20090901

REACTIONS (4)
  - ASTHMA [None]
  - DIZZINESS [None]
  - HEADACHE [None]
  - VOMITING [None]
